FAERS Safety Report 15756836 (Version 1)
Quarter: 2018Q4

REPORT INFORMATION
  Report Type: Spontaneous
  Country: US (occurrence: US)
  Receive Date: 20181224
  Receipt Date: 20181224
  Transmission Date: 20190205
  Serious: Yes (Other)
  Sender: FDA-Public Use
  Company Number: US-LUPIN PHARMACEUTICALS INC.-2018-08993

PATIENT
  Age: 71 Year
  Sex: Female

DRUGS (1)
  1. VANCOMYCIN [Suspect]
     Active Substance: VANCOMYCIN
     Indication: CATARACT
     Dosage: 0.25 MG, UNK
     Route: 047

REACTIONS (3)
  - Retinal vasculitis [Recovering/Resolving]
  - Type IV hypersensitivity reaction [Unknown]
  - Ciliary body melanoma [Recovering/Resolving]
